FAERS Safety Report 5467624-4 (Version None)
Quarter: 2007Q3

REPORT INFORMATION
  Report Type: 
  Country: None (occurrence: None)
  Receive Date: 20070925
  Receipt Date: 20070918
  Transmission Date: 20080115
  Serious: Yes (Life-Threatening, Hospitalization, Disabling, Other)
  Sender: FDA-Public Use
  Company Number: US-MERCK-0708USA05313

PATIENT
  Age: 64 Year
  Sex: Male

DRUGS (6)
  1. ZOCOR [Suspect]
     Indication: HYPERLIPIDAEMIA
     Route: 048
     Dates: start: 19920101, end: 20070801
  2. ZYLOPRIM [Concomitant]
     Route: 065
  3. COZAAR [Concomitant]
     Route: 048
  4. ATENOLOL [Concomitant]
     Route: 065
  5. ASPIRIN [Concomitant]
     Route: 065
  6. UROCIT-K [Concomitant]
     Route: 065

REACTIONS (2)
  - GALLBLADDER ENLARGEMENT [None]
  - PANCREATIC CARCINOMA [None]
